FAERS Safety Report 6351719-7 (Version None)
Quarter: 2009Q3

REPORT INFORMATION
  Report Type: 
  Country: None (occurrence: None)
  Receive Date: 20090912
  Receipt Date: 20090622
  Transmission Date: 20100115
  Serious: No
  Sender: FDA-Public Use
  Company Number: US-ABBOTT-07P-163-0421199-00

PATIENT
  Sex: Female
  Weight: 100 kg

DRUGS (12)
  1. HUMIRA [Suspect]
     Indication: RHEUMATOID ARTHRITIS
     Route: 058
     Dates: start: 20061001
  2. HUMIRA [Suspect]
     Route: 058
     Dates: start: 20040101, end: 20061001
  3. CELECOXIB [Concomitant]
     Indication: ARTHRITIS
     Route: 048
  4. ESCITALOPRAM OXALATE [Concomitant]
     Indication: DEPRESSION
     Route: 048
  5. PREDNISONE [Concomitant]
     Indication: DEPRESSION
     Route: 048
  6. METHOTREXATE [Concomitant]
     Indication: RHEUMATOID ARTHRITIS
     Route: 048
  7. LEVOTHYROXINE SODIUM [Concomitant]
     Indication: HYPOTHYROIDISM
     Route: 048
  8. VALSARTAN [Concomitant]
     Indication: BLOOD PRESSURE
     Route: 048
  9. HYDROCHLOROTHIAZIDE [Concomitant]
     Indication: OEDEMA
     Route: 048
  10. ZOLPIDEM TARTRATE [Concomitant]
     Indication: INSOMNIA
     Route: 048
  11. FOLIC ACID [Concomitant]
     Indication: RHEUMATOID ARTHRITIS
     Route: 048
  12. XOLATA GTTS [Concomitant]
     Indication: GLAUCOMA
     Route: 048

REACTIONS (1)
  - ACCIDENTAL NEEDLE STICK [None]
